FAERS Safety Report 19392967 (Version 2)
Quarter: 2021Q3

REPORT INFORMATION
  Report Type: Spontaneous
  Country: US (occurrence: US)
  Receive Date: 20210609
  Receipt Date: 20210720
  Transmission Date: 20211014
  Serious: Yes (Hospitalization)
  Sender: FDA-Public Use
  Company Number: US-SA-2021SA187532

PATIENT
  Age: 48 Year
  Sex: Male

DRUGS (1)
  1. DUPILUMAB [Suspect]
     Active Substance: DUPILUMAB
     Indication: ASTHMA
     Dosage: 300 MG, QOW
     Route: 058
     Dates: start: 20201229

REACTIONS (4)
  - Fall [Not Recovered/Not Resolved]
  - Product use issue [Unknown]
  - Wrist fracture [Not Recovered/Not Resolved]
  - Arthropod sting [Not Recovered/Not Resolved]

NARRATIVE: CASE EVENT DATE: 20201229
